FAERS Safety Report 21503867 (Version 1)
Quarter: 2022Q4

REPORT INFORMATION
  Report Type: Spontaneous
  Country: US (occurrence: US)
  Receive Date: 20221025
  Receipt Date: 20221025
  Transmission Date: 20230113
  Serious: Yes (Hospitalization, Other)
  Sender: FDA-Public Use
  Company Number: US-INCYTE CORPORATION-2022IN010085

PATIENT

DRUGS (1)
  1. JAKAFI [Suspect]
     Active Substance: RUXOLITINIB
     Indication: Polycythaemia vera
     Dosage: 20 MILLIGRAM, BID
     Route: 048
     Dates: start: 20220706

REACTIONS (6)
  - Femur fracture [Unknown]
  - Spinal pain [Unknown]
  - Osteopenia [Unknown]
  - Osteoporosis [Unknown]
  - Product dose omission issue [Unknown]
  - Anaemia [Unknown]

NARRATIVE: CASE EVENT DATE: 20220401
